FAERS Safety Report 4396596-9 (Version None)
Quarter: 2004Q3

REPORT INFORMATION
  Report Type: 
  Country: None (occurrence: None)
  Receive Date: 20040709
  Receipt Date: 20040629
  Transmission Date: 20050211
  Serious: Yes (Hospitalization)
  Sender: FDA-Public Use
  Company Number: 2004044006

PATIENT
  Age: 69 Year
  Sex: Male

DRUGS (3)
  1. AMLODIPINE [Suspect]
     Indication: HYPERTENSION
     Dosage: (5 MG)
  2. ALBENZA [Suspect]
     Indication: ECHINOCOCCIASIS
     Dosage: ORAL
     Route: 048
  3. GLIMEPIRIDE [Suspect]
     Indication: ILL-DEFINED DISORDER

REACTIONS (22)
  - CARCINOEMBRYONIC ANTIGEN INCREASED [None]
  - CARDIAC MURMUR [None]
  - CHOLESTASIS [None]
  - CYTOLYTIC HEPATITIS [None]
  - DIABETIC NEPHROPATHY [None]
  - ERYTHROSIS [None]
  - FATIGUE [None]
  - GENERAL PHYSICAL HEALTH DETERIORATION [None]
  - HEPATIC CIRRHOSIS [None]
  - HEPATITIS B [None]
  - HEPATOMEGALY [None]
  - HYPERTENSIVE NEPHROPATHY [None]
  - INFLAMMATION [None]
  - NAIL DISCOLOURATION [None]
  - NEPHROANGIOSCLEROSIS [None]
  - NODULE [None]
  - PORTAL HYPERTENSION [None]
  - SCAN ABDOMEN ABNORMAL [None]
  - SPLENOMEGALY [None]
  - THROMBOCYTOPENIA [None]
  - VARICES OESOPHAGEAL [None]
  - WEIGHT DECREASED [None]
